FAERS Safety Report 17199375 (Version 1)
Quarter: 2019Q4

REPORT INFORMATION
  Report Type: Report from Study
  Country: None (occurrence: US)
  Receive Date: 20191226
  Receipt Date: 20191226
  Transmission Date: 20200122
  Serious: Yes (Hospitalization)
  Sender: FDA-Public Use
  Company Number: US-ABBVIE-19K-163-3207886-00

PATIENT
  Sex: Male

DRUGS (2)
  1. HUMIRA [Suspect]
     Active Substance: ADALIMUMAB
     Indication: HIDRADENITIS
     Dosage: DAY 1
     Route: 058
     Dates: start: 20191125, end: 20191125
  2. HUMIRA [Suspect]
     Active Substance: ADALIMUMAB
     Dosage: DAY 15
     Route: 058
     Dates: start: 20191210, end: 20191210

REACTIONS (10)
  - Chills [Unknown]
  - Hyperhidrosis [Unknown]
  - Swelling [Recovering/Resolving]
  - Skin induration [Not Recovered/Not Resolved]
  - Inflammation [Unknown]
  - Groin pain [Recovering/Resolving]
  - Purulence [Not Recovered/Not Resolved]
  - Asthenia [Unknown]
  - Pyrexia [Unknown]
  - Skin discolouration [Not Recovered/Not Resolved]

NARRATIVE: CASE EVENT DATE: 2019
